FAERS Safety Report 4522029-5 (Version None)
Quarter: 2004Q4

REPORT INFORMATION
  Report Type: 
  Country: None (occurrence: None)
  Receive Date: 20041206
  Receipt Date: 20041119
  Transmission Date: 20050328
  Serious: Yes (Hospitalization)
  Sender: FDA-Public Use
  Company Number: 203409

PATIENT
  Age: 58 Year
  Sex: Male

DRUGS (12)
  1. AVONEX [Suspect]
     Indication: MULTIPLE SCLEROSIS
     Dosage: 30 UG; QW; IM
     Route: 030
  2. FOLIC ACID [Concomitant]
  3. ATENOLOL [Concomitant]
  4. AMIODERAL [Concomitant]
  5. PLAVIX [Concomitant]
  6. BACLOFEN [Concomitant]
  7. WELLBUTRIN [Concomitant]
  8. ZOCOR [Concomitant]
  9. ZYPREXA [Concomitant]
  10. LEXAPRO [Concomitant]
  11. METHOTREXATE [Concomitant]
  12. FOSAMAX [Concomitant]

REACTIONS (3)
  - BLOOD PRESSURE DECREASED [None]
  - SYNCOPE [None]
  - TRANSIENT ISCHAEMIC ATTACK [None]
